FAERS Safety Report 11555328 (Version 1)
Quarter: 2015Q3

REPORT INFORMATION
  Report Type: Spontaneous
  Country: US (occurrence: US)
  Receive Date: 20150903
  Receipt Date: 20150903
  Transmission Date: 20151125
  Serious: No
  Sender: FDA-Public Use
  Company Number: US-ELI_LILLY_AND_COMPANY-US201010003529

PATIENT
  Sex: Male

DRUGS (1)
  1. HUMALOG MIX75/25 [Suspect]
     Active Substance: INSULIN LISPRO
     Dosage: UNK, UNK

REACTIONS (9)
  - Blood glucose decreased [Unknown]
  - Hyperhidrosis [Unknown]
  - Incorrect dose administered [Unknown]
  - Dizziness [Unknown]
  - Rheumatoid arthritis [Unknown]
  - Mobility decreased [Unknown]
  - Blood glucose increased [Unknown]
  - Nasopharyngitis [Unknown]
  - Fear [Unknown]

NARRATIVE: CASE EVENT DATE: 20101119
